FAERS Safety Report 15890612 (Version 1)
Quarter: 2019Q1

REPORT INFORMATION
  Report Type: Spontaneous
  Country: US (occurrence: US)
  Receive Date: 20190130
  Receipt Date: 20190130
  Transmission Date: 20190417
  Serious: Yes (Other)
  Sender: FDA-Public Use
  Company Number: None

PATIENT
  Age: 46 Year
  Sex: Female
  Weight: 67.5 kg

DRUGS (7)
  1. FENTANYL. [Concomitant]
     Active Substance: FENTANYL
     Dates: start: 20190129, end: 20190129
  2. ROCURONIUM BROMIDE. [Suspect]
     Active Substance: ROCURONIUM BROMIDE
     Indication: INDUCTION OF ANAESTHESIA
     Dosage: ?          OTHER FREQUENCY:ONCE X 3;?
     Route: 040
  3. DEXAMETHASONE. [Concomitant]
     Active Substance: DEXAMETHASONE
     Dates: start: 20190129, end: 20190129
  4. CEFAZOLIN [Concomitant]
     Active Substance: CEFAZOLIN
     Dates: start: 20190129, end: 20190129
  5. PHENYLEPHRINE [Concomitant]
     Active Substance: PHENYLEPHRINE\PHENYLEPHRINE HYDROCHLORIDE
     Dates: start: 20190129, end: 20190129
  6. PROPOFOL. [Concomitant]
     Active Substance: PROPOFOL
     Dates: start: 20190129, end: 20190129
  7. LIDOCAINE. [Concomitant]
     Active Substance: LIDOCAINE
     Dates: start: 20190129, end: 20190129

REACTIONS (2)
  - Muscle twitching [None]
  - Treatment failure [None]

NARRATIVE: CASE EVENT DATE: 20190129
